FAERS Safety Report 10498380 (Version 3)
Quarter: 2014Q4

REPORT INFORMATION
  Report Type: Spontaneous
  Country: JP (occurrence: JP)
  Receive Date: 20141006
  Receipt Date: 20141114
  Transmission Date: 20150528
  Serious: Yes (Other)
  Sender: FDA-Public Use
  Company Number: PHHY2014JP129414

PATIENT
  Age: 69 Year
  Sex: Male

DRUGS (5)
  1. DECADRAN [Concomitant]
     Indication: PRODUCT USED FOR UNKNOWN INDICATION
     Route: 065
     Dates: start: 201005
  2. ZOMETA [Suspect]
     Active Substance: ZOLEDRONIC ACID
     Indication: METASTASES TO BONE
     Dosage: 4 MG, UNK
     Route: 041
     Dates: start: 201111, end: 20120221
  3. ZOMETA [Suspect]
     Active Substance: ZOLEDRONIC ACID
     Indication: METASTASES TO LYMPH NODES
  4. ZOMETA [Suspect]
     Active Substance: ZOLEDRONIC ACID
     Indication: HORMONE-REFRACTORY PROSTATE CANCER
  5. TAXOTERE [Concomitant]
     Active Substance: DOCETAXEL
     Indication: HORMONE-REFRACTORY PROSTATE CANCER
     Route: 042
     Dates: start: 201005, end: 201404

REACTIONS (15)
  - Osteonecrosis of jaw [Not Recovered/Not Resolved]
  - Oral pain [Unknown]
  - Dental caries [Unknown]
  - Pain in jaw [Unknown]
  - Exposed bone in jaw [Unknown]
  - Swelling [Unknown]
  - Osteomyelitis [Unknown]
  - Erythema [Unknown]
  - Poor personal hygiene [Unknown]
  - Quality of life decreased [Unknown]
  - Periodontitis [Unknown]
  - Toothache [Unknown]
  - Gingivitis [Unknown]
  - Soft tissue infection [Unknown]
  - Dental fistula [Unknown]

NARRATIVE: CASE EVENT DATE: 20120221
